FAERS Safety Report 9200787 (Version 1)
Quarter: 2013Q1

REPORT INFORMATION
  Report Type: Spontaneous
  Country: US (occurrence: None)
  Receive Date: 20130328
  Receipt Date: 20130328
  Transmission Date: 20140127
  Serious: Yes (Other)
  Sender: FDA-Public Use
  Company Number: None

PATIENT
  Age: 40 Year
  Sex: Female
  Weight: 88.45 kg

DRUGS (1)
  1. MIRENA [Suspect]
     Indication: CONTRACEPTION
     Dosage: 1 5 YEAR ENDOCERVICA

REACTIONS (6)
  - Anxiety [None]
  - Panic attack [None]
  - Hypertension [None]
  - Heart rate increased [None]
  - Fluid retention [None]
  - Sebaceous gland disorder [None]
